FAERS Safety Report 7285317-8 (Version None)
Quarter: 2011Q1

REPORT INFORMATION
  Report Type: 
  Country: None (occurrence: None)
  Receive Date: 20110210
  Receipt Date: 20110201
  Transmission Date: 20110831
  Serious: Yes (Hospitalization)
  Sender: FDA-Public Use
  Company Number: US-ROCHE-753257

PATIENT
  Sex: Female
  Weight: 87.5 kg

DRUGS (15)
  1. PROVENTIL-HFA [Concomitant]
     Dosage: 1 OR 2 PUFF QID PRN
     Route: 055
  2. ALPRAZOLAM [Concomitant]
     Dosage: DOSE AT BEDTIME
     Route: 048
  3. BONIVA [Suspect]
     Route: 048
  4. HYDROCORTISONE [Concomitant]
     Dosage: TRADE NAME ILLEGIBLE.
     Route: 054
  5. CHLORPHENAMINE [Concomitant]
     Dosage: TRADE NAME ILLEGIBLE. DOSE AT BEDTIME
     Route: 048
  6. MICARDIS [Concomitant]
     Route: 048
  7. BETAMETHASONE [Concomitant]
     Dosage: 1 APPLICATION TWICE DAILY
     Route: 061
  8. PROTONIX [Concomitant]
     Route: 048
  9. TRAMADOL HCL [Concomitant]
     Route: 048
  10. PROZAC [Concomitant]
     Route: 048
  11. CLONIDINE [Concomitant]
     Route: 048
  12. SYMBICORT [Concomitant]
     Dosage: 2 PUFF: DOSE
     Route: 055
  13. ZOCOR [Concomitant]
     Dosage: DOSE AT BEDTIME
     Route: 048
  14. SEROQUEL [Concomitant]
     Route: 048
  15. FLEXERIL [Concomitant]
     Dosage: DOSE AT BEDTIME
     Route: 048

REACTIONS (1)
  - FEMUR FRACTURE [None]
